FAERS Safety Report 7958159-5 (Version None)
Quarter: 2011Q4

REPORT INFORMATION
  Report Type: 
  Country: None (occurrence: None)
  Receive Date: 20111205
  Receipt Date: 20111130
  Transmission Date: 20120403
  Serious: Yes (Other)
  Sender: FDA-Public Use
  Company Number: US-PFIZER INC-2011279242

PATIENT
  Sex: Female

DRUGS (12)
  1. GEODON [Suspect]
     Dosage: 60 MG, 2X/DAY
     Route: 048
  2. OMEPRAZOLE [Concomitant]
     Dosage: 20 MG, UNK
  3. ABILIFY [Concomitant]
     Dosage: 5 MG, 1X/DAY (5MG EVERY MORNING)
     Route: 048
  4. ANASTROZOLE [Concomitant]
     Dosage: 1 MG, UNK
  5. CIPROFLOXACIN HYDROCHLORIDE [Concomitant]
     Dosage: 500 MG, UNK
  6. GEODON [Suspect]
     Dosage: UNK
  7. BENZTROPINE MESYLATE [Concomitant]
     Dosage: 0.5 MG, UNK
  8. NEXIUM [Concomitant]
     Dosage: 40 MG, UNK
  9. ATENOLOL AND CHLORTHALIDONE [Concomitant]
     Dosage: 50MG-25MG TB
  10. KLOR-CON [Concomitant]
     Dosage: 20 MEQ, UNK
  11. GEODON [Suspect]
     Dosage: 40 MG, UNK
  12. LEXAPRO [Concomitant]
     Dosage: 10 MG, UNK

REACTIONS (2)
  - SUICIDE ATTEMPT [None]
  - SUICIDAL IDEATION [None]
